FAERS Safety Report 15134844 (Version 1)
Quarter: 2018Q3

REPORT INFORMATION
  Report Type: Spontaneous
  Country: NL (occurrence: NL)
  Receive Date: 20180712
  Receipt Date: 20180712
  Transmission Date: 20181010
  Serious: Yes (Death)
  Sender: FDA-Public Use
  Company Number: NL-PFIZER INC-2018276948

PATIENT
  Sex: Female

DRUGS (3)
  1. BEVACIZUMAB. [Suspect]
     Active Substance: BEVACIZUMAB
     Indication: COLORECTAL CANCER
     Dosage: DATE OF LAST CYCLE: 13APR2018
     Route: 065
     Dates: start: 20180413
  2. CAPECITABINE. [Suspect]
     Active Substance: CAPECITABINE
     Indication: COLORECTAL CANCER
     Dosage: DATE OF LAST CYCLE: 26APR2018
     Route: 065
     Dates: start: 20180413
  3. OXALIPLATIN. [Suspect]
     Active Substance: OXALIPLATIN
     Indication: COLORECTAL CANCER
     Dosage: DATE OF LAST CYCLE: 13APR2018
     Route: 065
     Dates: start: 20180413

REACTIONS (2)
  - Diarrhoea [Fatal]
  - Abdominal pain [Fatal]

NARRATIVE: CASE EVENT DATE: 20180504
